FAERS Safety Report 12404139 (Version 1)
Quarter: 2016Q2

REPORT INFORMATION
  Report Type: Spontaneous
  Country: IT (occurrence: IT)
  Receive Date: 20160525
  Receipt Date: 20160525
  Transmission Date: 20160815
  Serious: Yes (Hospitalization)
  Sender: FDA-Public Use
  Company Number: IT-BAYER-2016-095055

PATIENT
  Age: 33 Year
  Sex: Female
  Weight: 65 kg

DRUGS (1)
  1. BETAFERON [Suspect]
     Active Substance: INTERFERON BETA-1B
     Indication: MULTIPLE SCLEROSIS
     Dosage: UNK
     Route: 058
     Dates: start: 20111201

REACTIONS (1)
  - Biliary colic [Recovering/Resolving]

NARRATIVE: CASE EVENT DATE: 20160405
